FAERS Safety Report 23621411 (Version 1)
Quarter: 2024Q1

REPORT INFORMATION
  Report Type: Spontaneous
  Country: US (occurrence: None)
  Receive Date: 20240311
  Receipt Date: 20240311
  Transmission Date: 20240410
  Serious: No
  Sender: FDA-Public Use
  Company Number: None

PATIENT
  Age: 68 Year
  Sex: Male
  Weight: 79.4 kg

DRUGS (8)
  1. DALFAMPRIDINE [Suspect]
     Active Substance: DALFAMPRIDINE
     Indication: Multiple sclerosis
     Dosage: FREQUENCY : TWICE A DAY;?
     Route: 048
     Dates: start: 20240222, end: 20240311
  2. ALFUZOSIN [Concomitant]
     Active Substance: ALFUZOSIN
  3. GABAPENTIN [Concomitant]
     Active Substance: GABAPENTIN
  4. REMERON [Concomitant]
     Active Substance: MIRTAZAPINE
  5. BACLOFEN [Concomitant]
     Active Substance: BACLOFEN
  6. ROSUVASTATIN [Concomitant]
     Active Substance: ROSUVASTATIN
  7. HYZAAR [Concomitant]
     Active Substance: HYDROCHLOROTHIAZIDE\LOSARTAN POTASSIUM
  8. TRAZODONE [Concomitant]
     Active Substance: TRAZODONE HYDROCHLORIDE

REACTIONS (2)
  - Insomnia [None]
  - Therapy cessation [None]

NARRATIVE: CASE EVENT DATE: 20240311
